FAERS Safety Report 11529518 (Version 2)
Quarter: 2015Q4

REPORT INFORMATION
  Report Type: Report from Study
  Country: CA (occurrence: CA)
  Receive Date: 20150921
  Receipt Date: 20151109
  Transmission Date: 20160304
  Serious: Yes (Hospitalization)
  Sender: FDA-Public Use
  Company Number: CA-OTSUKA-2015_010175

PATIENT

DRUGS (31)
  1. ABILIFY MAINTENA [Suspect]
     Active Substance: ARIPIPRAZOLE
     Dosage: 400 MG, 1 EVERY 3 WEEKS
     Route: 030
     Dates: start: 20150818
  2. SEROQUEL [Concomitant]
     Active Substance: QUETIAPINE FUMARATE
     Indication: ANXIETY
     Dosage: 25 MG, 1 TO 2 TABLETS 3 TIMES A DAY
     Route: 048
     Dates: start: 20141031, end: 20150507
  3. TYLENOL [Concomitant]
     Active Substance: ACETAMINOPHEN
     Indication: HEADACHE
     Dosage: 500 MG, QID IF NEEDED
     Route: 048
     Dates: start: 20141111, end: 20150507
  4. DIVALPROEX [Concomitant]
     Active Substance: DIVALPROEX SODIUM
     Dosage: 500 MG, QD
     Route: 048
     Dates: start: 20150417, end: 20150604
  5. DIVALPROEX [Concomitant]
     Active Substance: DIVALPROEX SODIUM
     Dosage: 1250 MG, QD
     Route: 048
     Dates: start: 20150313, end: 20150416
  6. ARIPIPRAZOLE. [Concomitant]
     Active Substance: ARIPIPRAZOLE
     Indication: SCHIZOPHRENIA
     Dosage: 15 MG, QD
     Route: 048
     Dates: start: 20141101, end: 20141202
  7. AMOXIL [Concomitant]
     Active Substance: AMOXICILLIN
     Indication: ANTIBIOTIC PROPHYLAXIS
     Dosage: 1000 MG, QD
     Route: 048
     Dates: start: 20150217, end: 20150217
  8. ABILIFY MAINTENA [Suspect]
     Active Substance: ARIPIPRAZOLE
     Indication: SCHIZOPHRENIA
     Dosage: 400 MG, 1 EVERY 4 WEEKS
     Route: 030
     Dates: start: 20141118
  9. ABILIFY MAINTENA [Suspect]
     Active Substance: ARIPIPRAZOLE
     Dosage: 400 MG, 1 EVERY 4 WEEKS
     Route: 030
     Dates: start: 20150113
  10. ABILIFY MAINTENA [Suspect]
     Active Substance: ARIPIPRAZOLE
     Dosage: 400 MG, 1 EVERY 4 WEEKS
     Route: 030
     Dates: start: 20150602
  11. DIVALPROEX [Concomitant]
     Active Substance: DIVALPROEX SODIUM
     Indication: MOOD ALTERED
     Dosage: 1250 MG, QD
     Route: 048
     Dates: start: 20141202, end: 20150312
  12. DIVALPROEX [Concomitant]
     Active Substance: DIVALPROEX SODIUM
     Dosage: 1250 MG, QD
     Route: 048
     Dates: start: 20150417
  13. TRAZODONE [Concomitant]
     Active Substance: TRAZODONE HYDROCHLORIDE
     Indication: INSOMNIA
     Dosage: 50 MG, QD
     Route: 048
     Dates: start: 20141103, end: 20150316
  14. STRATTERA [Concomitant]
     Active Substance: ATOMOXETINE HYDROCHLORIDE
     Indication: ATTENTION DEFICIT/HYPERACTIVITY DISORDER
     Dosage: 40 MG, QD
     Route: 048
     Dates: start: 20150202, end: 20150309
  15. ABILIFY MAINTENA [Suspect]
     Active Substance: ARIPIPRAZOLE
     Dosage: 400 MG, 1 EVERY 4 WEEKS
     Route: 030
     Dates: start: 20150210
  16. DIVALPROEX [Concomitant]
     Active Substance: DIVALPROEX SODIUM
     Indication: IMPULSIVE BEHAVIOUR
     Dosage: 500 MG, BID
     Route: 048
     Dates: start: 20141108, end: 20141201
  17. DIPHENHYDRAMINE. [Concomitant]
     Active Substance: DIPHENHYDRAMINE
     Indication: INSOMNIA
     Dosage: 25 MG, AT BEDTIME IF NEEDED
     Route: 048
     Dates: start: 20141108, end: 20150507
  18. TYLENOL [Concomitant]
     Active Substance: ACETAMINOPHEN
     Indication: PAIN
  19. ABILIFY MAINTENA [Suspect]
     Active Substance: ARIPIPRAZOLE
     Dosage: 400 MG, 1 EVERY 4 WEEKS
     Route: 030
     Dates: start: 20150505
  20. DIVALPROEX [Concomitant]
     Active Substance: DIVALPROEX SODIUM
     Dosage: 500 MG, QD
     Route: 048
     Dates: start: 20150321, end: 20150416
  21. BISOPROLOL [Concomitant]
     Active Substance: BISOPROLOL
     Indication: TACHYCARDIA
     Dosage: 5 MG, QD
     Route: 048
     Dates: start: 2013, end: 20141014
  22. ABILIFY MAINTENA [Suspect]
     Active Substance: ARIPIPRAZOLE
     Dosage: 400 MG, 1 EVERY 4 WEEKS
     Route: 030
     Dates: start: 20150630
  23. SEROQUEL [Concomitant]
     Active Substance: QUETIAPINE FUMARATE
     Indication: INSOMNIA
  24. BENZTROPINE [Concomitant]
     Active Substance: BENZTROPINE
     Indication: EXTRAPYRAMIDAL DISORDER
     Dosage: 2 MG,  3 TIMES A DAY IF NEEDED
     Route: 048
     Dates: start: 20141031, end: 20150507
  25. BISOPROLOL [Concomitant]
     Active Substance: BISOPROLOL
     Indication: HYPERTENSION
  26. AMOXIL [Concomitant]
     Active Substance: AMOXICILLIN
     Dosage: 500 MG, TID
     Route: 048
     Dates: start: 20150218, end: 20150225
  27. ABILIFY MAINTENA [Suspect]
     Active Substance: ARIPIPRAZOLE
     Dosage: 400 MG, 1 EVERY 4 WEEKS
     Route: 030
     Dates: start: 20141216
  28. ABILIFY MAINTENA [Suspect]
     Active Substance: ARIPIPRAZOLE
     Dosage: 400 MG, 1 EVERY 4 WEEKS
     Route: 030
     Dates: start: 20150728
  29. OMEGA 3 [Concomitant]
     Active Substance: OMEGA-3 FATTY ACIDS
     Indication: NUTRITIONAL SUPPLEMENTATION
     Dosage: 1000 MG, QD
     Route: 048
     Dates: start: 20150219
  30. ABILIFY MAINTENA [Suspect]
     Active Substance: ARIPIPRAZOLE
     Dosage: 400 MG, 1 EVERY 4 WEEKS
     Route: 030
     Dates: start: 20150310
  31. ABILIFY MAINTENA [Suspect]
     Active Substance: ARIPIPRAZOLE
     Dosage: 400 MG, 1 EVERY 4 WEEKS
     Route: 030
     Dates: start: 20150407

REACTIONS (2)
  - Psychiatric decompensation [Recovered/Resolved]
  - Product use issue [Recovered/Resolved]

NARRATIVE: CASE EVENT DATE: 201507
